FAERS Safety Report 10760666 (Version 4)
Quarter: 2016Q1

REPORT INFORMATION
  Report Type: Report from Study
  Country: JP (occurrence: JP)
  Receive Date: 20150204
  Receipt Date: 20160121
  Transmission Date: 20160525
  Serious: Yes (Other)
  Sender: FDA-Public Use
  Company Number: JP-AMGEN-JPNCT2014056669

PATIENT
  Age: 65 Year
  Sex: Female
  Weight: 92 kg

DRUGS (10)
  1. FEMARA [Suspect]
     Active Substance: LETROZOLE
     Indication: PRODUCT USED FOR UNKNOWN INDICATION
     Dosage: UNK
     Route: 065
     Dates: start: 20131029
  2. DENOSUMAB [Suspect]
     Active Substance: DENOSUMAB
     Indication: METASTASES TO BONE
     Dosage: 120 MG, UNK
     Route: 058
     Dates: start: 20131209
  3. CEFCAPENE PIVOXIL HYDROCHLORIDE [Suspect]
     Active Substance: CEFCAPENE PIVOXIL HYDROCHLORIDE
     Indication: PRODUCT USED FOR UNKNOWN INDICATION
     Dosage: 300 MG, QD
     Route: 048
     Dates: start: 20140814, end: 20140821
  4. LOXOPROFEN [Concomitant]
     Active Substance: LOXOPROFEN
     Dosage: 3 DF, QD
     Route: 048
     Dates: start: 20131029, end: 20140105
  5. METHYCOBAL [Concomitant]
     Active Substance: METHYLCOBALAMIN
     Dosage: 1500 MUG, QD
     Route: 048
     Dates: start: 20150722
  6. CLARITHROMYCIN. [Suspect]
     Active Substance: CLARITHROMYCIN
     Indication: PRODUCT USED FOR UNKNOWN INDICATION
     Dosage: 400 MG, QD
     Route: 048
     Dates: start: 20140828, end: 20150108
  7. LIXIANA [Concomitant]
     Active Substance: EDOXABAN TOSILATE MONOHYDRATE
     Dosage: 30 MG, QD
     Route: 048
     Dates: start: 20151105
  8. DENOTAS [Concomitant]
     Active Substance: CALCIUM CARBONATE\CHOLECALCIFEROL\MAGNESIUM CARBONATE
     Dosage: 2 DF, QD
     Route: 048
     Dates: start: 20131209
  9. ADETPHOS [Concomitant]
     Active Substance: ADENOSINE TRIPHOSPHATE
     Dosage: 300 MG, QD
     Route: 048
     Dates: start: 20150722
  10. EYEDROITIN [Concomitant]
     Dosage: 3 UNK, QD
     Route: 050
     Dates: start: 20150729

REACTIONS (6)
  - Osteonecrosis of jaw [Not Recovered/Not Resolved]
  - Gingival ulceration [Recovered/Resolved]
  - Blood bilirubin increased [Recovered/Resolved]
  - Osteonecrosis of jaw [Recovered/Resolved]
  - White blood cell count decreased [Recovered/Resolved]
  - Gingival ulceration [Recovered/Resolved]

NARRATIVE: CASE EVENT DATE: 20131224
